FAERS Safety Report 16856088 (Version 3)
Quarter: 2022Q1

REPORT INFORMATION
  Report Type: Spontaneous
  Country: US (occurrence: US)
  Receive Date: 20190926
  Receipt Date: 20220127
  Transmission Date: 20220423
  Serious: Yes (Hospitalization, Other)
  Sender: FDA-Public Use
  Company Number: US-GILEAD-2019-0429607

PATIENT
  Age: 41 Year
  Sex: Female
  Weight: 72.562 kg

DRUGS (57)
  1. TRUVADA [Suspect]
     Active Substance: EMTRICITABINE\TENOFOVIR DISOPROXIL FUMARATE
     Indication: HIV infection
     Dosage: UNK
     Route: 048
     Dates: start: 2009, end: 201711
  2. TRUVADA [Suspect]
     Active Substance: EMTRICITABINE\TENOFOVIR DISOPROXIL FUMARATE
     Dosage: UNK
     Route: 048
     Dates: start: 2007, end: 201711
  3. TRUVADA [Suspect]
     Active Substance: EMTRICITABINE\TENOFOVIR DISOPROXIL FUMARATE
     Dosage: UNK
     Route: 048
     Dates: end: 201712
  4. STRIBILD [Suspect]
     Active Substance: COBICISTAT\ELVITEGRAVIR\EMTRICITABINE\TENOFOVIR DISOPROXIL FUMARATE
     Indication: HIV infection
     Dosage: UNK
     Route: 048
     Dates: end: 2017
  5. DESCOVY [Concomitant]
     Active Substance: EMTRICITABINE\TENOFOVIR ALAFENAMIDE FUMARATE
  6. TIVICAY [Concomitant]
     Active Substance: DOLUTEGRAVIR SODIUM
  7. VIRAMUNE [Concomitant]
     Active Substance: NEVIRAPINE
  8. COREG [Concomitant]
     Active Substance: CARVEDILOL
  9. LISINOPRIL [Concomitant]
     Active Substance: LISINOPRIL
  10. FOLIC ACID [Concomitant]
     Active Substance: FOLIC ACID
  11. METFORMIN [Concomitant]
     Active Substance: METFORMIN HYDROCHLORIDE
  12. GABAPENTIN [Concomitant]
     Active Substance: GABAPENTIN
  13. GEMFIBROZIL [Concomitant]
     Active Substance: GEMFIBROZIL
  14. PANTOPRAZOLE [Concomitant]
     Active Substance: PANTOPRAZOLE
  15. MYRBETRIQ [Concomitant]
     Active Substance: MIRABEGRON
  16. BACLOFEN [Concomitant]
     Active Substance: BACLOFEN
  17. OXYCODONE [Concomitant]
     Active Substance: OXYCODONE
  18. PHENERGAN [Concomitant]
     Active Substance: PROMETHAZINE HYDROCHLORIDE
  19. CLONAZEPAM [Concomitant]
     Active Substance: CLONAZEPAM
  20. ASPIRIN [Concomitant]
     Active Substance: ASPIRIN
  21. VITAMINS NOS [Concomitant]
     Active Substance: VITAMINS
  22. ADENOSINE [Concomitant]
     Active Substance: ADENOSINE
  23. FLUCONAZOLE [Concomitant]
     Active Substance: FLUCONAZOLE
  24. CARVEDILOL [Concomitant]
     Active Substance: CARVEDILOL
  25. LOVAZA [Concomitant]
     Active Substance: OMEGA-3-ACID ETHYL ESTERS
  26. PREDNISONE [Concomitant]
     Active Substance: PREDNISONE
  27. DETROL [Concomitant]
     Active Substance: TOLTERODINE TARTRATE
  28. SIMVASTATIN [Concomitant]
     Active Substance: SIMVASTATIN
  29. THIAMINE [Concomitant]
     Active Substance: THIAMINE
  30. VITAMIN B12 [Concomitant]
     Active Substance: CYANOCOBALAMIN
  31. ACETAMINOPHEN\OXYCODONE HYDROCHLORIDE\OXYCODONE TEREPHTHALATE [Concomitant]
     Active Substance: ACETAMINOPHEN\OXYCODONE HYDROCHLORIDE\OXYCODONE TEREPHTHALATE
  32. ALDACTONE [Concomitant]
     Active Substance: SPIRONOLACTONE
  33. AUGMENTIN [Concomitant]
     Active Substance: AMOXICILLIN\CLAVULANATE POTASSIUM
  34. METOPROLOL TARTRATE [Concomitant]
     Active Substance: METOPROLOL TARTRATE
  35. ACETAMINOPHEN [Concomitant]
     Active Substance: ACETAMINOPHEN
  36. ALBUTEROL [Concomitant]
     Active Substance: ALBUTEROL
  37. PEPCID [Concomitant]
     Active Substance: FAMOTIDINE
  38. CEFIXIME [Concomitant]
     Active Substance: CEFIXIME
  39. VASCEPA [Concomitant]
     Active Substance: ICOSAPENT ETHYL
  40. SYNTHROID [Concomitant]
     Active Substance: LEVOTHYROXINE SODIUM
  41. TRAZODONE [Concomitant]
     Active Substance: TRAZODONE HYDROCHLORIDE
  42. CLONIDINE [Concomitant]
     Active Substance: CLONIDINE
  43. ALLOPURINOL [Concomitant]
     Active Substance: ALLOPURINOL
  44. VICODIN [Concomitant]
     Active Substance: ACETAMINOPHEN\HYDROCODONE BITARTRATE
  45. EFFEXOR XR [Concomitant]
     Active Substance: VENLAFAXINE HYDROCHLORIDE
  46. ATENOLOL [Concomitant]
     Active Substance: ATENOLOL
  47. AMITRIPTYLINE [Concomitant]
     Active Substance: AMITRIPTYLINE
  48. AZITHROMYCIN [Concomitant]
     Active Substance: AZITHROMYCIN
  49. ATIVAN [Concomitant]
     Active Substance: LORAZEPAM
  50. REMERON [Concomitant]
     Active Substance: MIRTAZAPINE
  51. HABITROL [Concomitant]
     Active Substance: NICOTINE
  52. NEXIUM [Concomitant]
     Active Substance: ESOMEPRAZOLE MAGNESIUM
  53. TIZANIDINE HYDROCHLORIDE [Concomitant]
     Active Substance: TIZANIDINE HYDROCHLORIDE
  54. LOPERAMIDE [Concomitant]
     Active Substance: LOPERAMIDE
  55. AMOXICILLIN [Concomitant]
     Active Substance: AMOXICILLIN
  56. PSEUDOEPHEDRINE [Concomitant]
     Active Substance: PSEUDOEPHEDRINE
  57. OXYBUTYNIN [Concomitant]
     Active Substance: OXYBUTYNIN

REACTIONS (24)
  - Osteoporosis [Unknown]
  - End stage renal disease [Unknown]
  - Renal failure [Recovered/Resolved]
  - Acute kidney injury [Recovered/Resolved]
  - Gait disturbance [Not Recovered/Not Resolved]
  - Dysstasia [Not Recovered/Not Resolved]
  - Impaired work ability [Not Recovered/Not Resolved]
  - Immobile [Not Recovered/Not Resolved]
  - Loss of personal independence in daily activities [Not Recovered/Not Resolved]
  - Fatigue [Unknown]
  - Decreased activity [Not Recovered/Not Resolved]
  - Quality of life decreased [Not Recovered/Not Resolved]
  - Economic problem [Not Recovered/Not Resolved]
  - Anhedonia [Not Recovered/Not Resolved]
  - Emotional distress [Not Recovered/Not Resolved]
  - Anxiety [Not Recovered/Not Resolved]
  - Pain [Not Recovered/Not Resolved]
  - Intervertebral disc degeneration [Unknown]
  - Nausea [Not Recovered/Not Resolved]
  - Back pain [Not Recovered/Not Resolved]
  - Vomiting [Not Recovered/Not Resolved]
  - Arthropathy [Not Recovered/Not Resolved]
  - Bone density decreased [Not Recovered/Not Resolved]
  - Depression [Not Recovered/Not Resolved]

NARRATIVE: CASE EVENT DATE: 20171101
